FAERS Safety Report 6129535-0 (Version None)
Quarter: 2009Q1

REPORT INFORMATION
  Report Type: 
  Country: None (occurrence: None)
  Receive Date: 20090324
  Receipt Date: 20090320
  Transmission Date: 20090719
  Serious: Yes (Death)
  Sender: FDA-Public Use
  Company Number: PHHY2009GB10616

PATIENT

DRUGS (1)
  1. TEGRETOL [Suspect]
     Dosage: 400 MG, UNK

REACTIONS (2)
  - ALCOHOL POISONING [None]
  - OVERDOSE [None]
